FAERS Safety Report 11258603 (Version 2)
Quarter: 2015Q2

REPORT INFORMATION
  Report Type: Spontaneous
  Country: US (occurrence: None)
  Receive Date: 20150617
  Receipt Date: 20150617
  Transmission Date: 20150821
  Serious: No
  Sender: FDA-Public Use
  Company Number: 2014TASUS000538

PATIENT
  Age: 82 Year
  Sex: Female

DRUGS (9)
  1. METOPROLOL (METOPROLOL TARTRATE) [Concomitant]
     Active Substance: METOPROLOL TARTRATE
  2. PLAVIX [Concomitant]
     Active Substance: CLOPIDOGREL BISULFATE
  3. TRAVATAN (TRAVOPROST) [Concomitant]
  4. VITAMIN D (COLECALCIFEROL) [Concomitant]
  5. LEVOTHYROXINE SODIUM. [Concomitant]
     Active Substance: LEVOTHYROXINE SODIUM
  6. PRAVASTATIN [Concomitant]
     Active Substance: PRAVASTATIN\PRAVASTATIN SODIUM
  7. ASPIRIN (ACETYLSALICYLIC ACID) [Concomitant]
     Active Substance: ASPIRIN
  8. HETLIOZ [Suspect]
     Active Substance: TASIMELTEON
     Indication: CIRCADIAN RHYTHM SLEEP DISORDER
     Dosage: 20 MG, QD 1 HOUR BEFORE BEDTIME, ORAL
     Route: 048
     Dates: start: 20141003, end: 20141017
  9. MECLIZINE [Concomitant]
     Active Substance: MECLIZINE\MECLIZINE HYDROCHLORIDE

REACTIONS (6)
  - Oropharyngeal pain [None]
  - Somnolence [None]
  - Dizziness [None]
  - Headache [None]
  - Asthenopia [None]
  - Nightmare [None]

NARRATIVE: CASE EVENT DATE: 20141003
